FAERS Safety Report 5824281-2 (Version None)
Quarter: 2008Q3

REPORT INFORMATION
  Report Type: 
  Country: None (occurrence: None)
  Receive Date: 20080728
  Receipt Date: 20080718
  Transmission Date: 20090109
  Serious: Yes (Other)
  Sender: FDA-Public Use
  Company Number: GB-ROCHE-533900

PATIENT
  Age: 38 Year
  Sex: Male

DRUGS (4)
  1. MYCOPHENOLATE MOFETIL [Suspect]
     Route: 065
  2. THYMOGLOBULIN [Suspect]
     Dosage: REPORTED AS ANTITHYMOCYTE IMMUNOGLOBULIN UNSPECIFIED
     Route: 065
  3. PREDNISOLONE [Suspect]
     Route: 065
  4. PROGRAF [Suspect]
     Route: 065

REACTIONS (9)
  - CARPAL TUNNEL SYNDROME [None]
  - LIGAMENT DISORDER [None]
  - MOTOR DYSFUNCTION [None]
  - NERVE COMPRESSION [None]
  - PAIN [None]
  - PAIN IN EXTREMITY [None]
  - SENSORY LOSS [None]
  - SWELLING [None]
  - SYSTEMIC INFLAMMATORY RESPONSE SYNDROME [None]
